APPROVED DRUG PRODUCT: BENZTROPINE MESYLATE
Active Ingredient: BENZTROPINE MESYLATE
Strength: 2MG **Federal Register determination that product was not discontinued or withdrawn for safety or effectiveness reasons**
Dosage Form/Route: TABLET;ORAL
Application: A088895 | Product #001
Applicant: LANNETT CO INC
Approved: Apr 11, 1985 | RLD: No | RS: No | Type: DISCN